FAERS Safety Report 4949241-5 (Version None)
Quarter: 2006Q1

REPORT INFORMATION
  Report Type: 
  Country: None (occurrence: None)
  Receive Date: 20060321
  Receipt Date: 20060313
  Transmission Date: 20060701
  Serious: Yes (Hospitalization)
  Sender: FDA-Public Use
  Company Number: FR-SANOFI-SYNTHELABO-A02200600652

PATIENT
  Age: 75 Year
  Sex: Male
  Weight: 60 kg

DRUGS (4)
  1. FASTURTEC [Suspect]
     Indication: DRUG USE FOR UNKNOWN INDICATION
     Route: 042
     Dates: start: 20060116, end: 20060116
  2. MABTHERA [Suspect]
     Indication: DRUG USE FOR UNKNOWN INDICATION
     Route: 042
     Dates: start: 20060116, end: 20060116
  3. POLARAMINE [Concomitant]
     Route: 065
     Dates: start: 20060116, end: 20060116
  4. SOLU-MEDROL [Concomitant]
     Route: 065
     Dates: start: 20060116, end: 20060116

REACTIONS (1)
  - THROMBOCYTOPENIA [None]
